FAERS Safety Report 20530254 (Version 2)
Quarter: 2023Q1

REPORT INFORMATION
  Report Type: Spontaneous
  Country: CA (occurrence: CA)
  Receive Date: 20220301
  Receipt Date: 20230304
  Transmission Date: 20230418
  Serious: Yes (Congenital Anomaly, Other)
  Sender: FDA-Public Use
  Company Number: CA-TEVA-2022-CA-2011004

PATIENT
  Age: 58 Year
  Sex: Female

DRUGS (7)
  1. CARBOPLATIN [Suspect]
     Active Substance: CARBOPLATIN
     Indication: Product used for unknown indication
     Route: 042
  2. PEMETREXED DISODIUM HEMIPENTAHYDRATE [Suspect]
     Active Substance: PEMETREXED DISODIUM HEMIPENTAHYDRATE
     Indication: Non-small cell lung cancer metastatic
     Route: 042
  3. VINORELBINE TARTRATE [Suspect]
     Active Substance: VINORELBINE TARTRATE
     Indication: Non-small cell lung cancer metastatic
     Route: 065
  4. TAXOTERE [Suspect]
     Active Substance: DOCETAXEL
     Indication: Non-small cell lung cancer metastatic
     Route: 042
  5. OSIMERTINIB [Suspect]
     Active Substance: OSIMERTINIB
     Indication: Non-small cell lung cancer metastatic
     Route: 065
  6. KEYTRUDA [Suspect]
     Active Substance: PEMBROLIZUMAB
     Indication: Non-small cell lung cancer metastatic
     Route: 065
  7. GEMCITABINE HYDROCHLORIDE [Suspect]
     Active Substance: GEMCITABINE HYDROCHLORIDE
     Indication: Non-small cell lung cancer metastatic
     Route: 065

REACTIONS (4)
  - Acquired gene mutation [Not Recovered/Not Resolved]
  - Pulmonary embolism [Not Recovered/Not Resolved]
  - Malignant neoplasm progression [Not Recovered/Not Resolved]
  - Off label use [Not Recovered/Not Resolved]
